FAERS Safety Report 23774347 (Version 2)
Quarter: 2024Q2

REPORT INFORMATION
  Report Type: Spontaneous
  Country: US (occurrence: None)
  Receive Date: 20240423
  Receipt Date: 20240603
  Transmission Date: 20240716
  Serious: Yes (Other)
  Sender: FDA-Public Use
  Company Number: 2024A091301

PATIENT
  Sex: Female

DRUGS (1)
  1. CALQUENCE [Suspect]
     Active Substance: ACALABRUTINIB
     Route: 048

REACTIONS (6)
  - Dementia [Unknown]
  - White blood cell count increased [Unknown]
  - Gastrointestinal infection [Unknown]
  - Kidney infection [Unknown]
  - Dysphagia [Unknown]
  - Product dose omission issue [Unknown]
